FAERS Safety Report 4515281-3 (Version None)
Quarter: 2004Q4

REPORT INFORMATION
  Report Type: 
  Country: None (occurrence: None)
  Receive Date: 20041130
  Receipt Date: 20041130
  Transmission Date: 20050328
  Serious: Yes (Other)
  Sender: FDA-Public Use
  Company Number: None

PATIENT
  Sex: Male

DRUGS (9)
  1. EPOETIN 4000 UNITS/ML [Suspect]
     Indication: RENAL FAILURE CHRONIC
     Dosage: 4000 UNITS WEEKLY SUBCUTANEOUS
     Route: 058
     Dates: start: 20040811, end: 20040811
  2. ASPIRIN [Concomitant]
  3. INSULIN [Concomitant]
  4. FUROSEMIDE [Concomitant]
  5. SODIUM BICARBONATE [Concomitant]
  6. SIMVASTATIN [Concomitant]
  7. NEPHROCAPS [Concomitant]
  8. FELODIPINE [Concomitant]
  9. CLONIDINE [Concomitant]

REACTIONS (4)
  - LACRIMATION INCREASED [None]
  - PERIORBITAL OEDEMA [None]
  - RASH [None]
  - URTICARIA [None]
